FAERS Safety Report 9255432 (Version 1)
Quarter: 2013Q1

REPORT INFORMATION
  Report Type: Spontaneous
  Country: US (occurrence: None)
  Receive Date: 20121212
  Receipt Date: 20121212
  Transmission Date: 20140127
  Serious: No
  Sender: FDA-Public Use
  Company Number: 1209USA010488

PATIENT
  Age: 53 Year
  Sex: Female

DRUGS (2)
  1. PEGINTRON [Suspect]
     Indication: HEPATITIS C
     Dosage: REDIPEN
     Dates: start: 20120507
  2. REBETOL [Suspect]
     Indication: HEPATITIS
     Dates: start: 20120507

REACTIONS (4)
  - Throat tightness [None]
  - Diarrhoea [None]
  - Insomnia [None]
  - Platelet count decreased [None]
